FAERS Safety Report 6397407-2 (Version None)
Quarter: 2009Q4

REPORT INFORMATION
  Report Type: 
  Country: None (occurrence: None)
  Receive Date: 20091012
  Receipt Date: 20090929
  Transmission Date: 20100525
  Serious: Yes (Other)
  Sender: FDA-Public Use
  Company Number: PHEH2009US12488

PATIENT
  Sex: Male

DRUGS (8)
  1. GLEEVEC [Suspect]
     Dosage: 400 MG, UNK
     Dates: start: 20030101
  2. FOLIC ACID [Concomitant]
  3. SODIUM BICARBONATE IN PLASTIC CONTAINER [Concomitant]
  4. SYNTHROID [Concomitant]
     Dosage: 150 MG, UNK
  5. QUINAPRIL [Concomitant]
  6. METHOTREXATE [Concomitant]
  7. OSCAL [Concomitant]
     Dosage: 500 MG, UNK
  8. DAILY VITAMINS [Concomitant]

REACTIONS (3)
  - ABDOMINAL DISCOMFORT [None]
  - DIARRHOEA [None]
  - THYROID DISORDER [None]
